FAERS Safety Report 7765640-0 (Version None)
Quarter: 2011Q3

REPORT INFORMATION
  Report Type: 
  Country: None (occurrence: None)
  Receive Date: 20110906
  Receipt Date: 20110628
  Transmission Date: 20111222
  Serious: No
  Sender: FDA-Public Use
  Company Number: 201011004

PATIENT
  Age: 68 Year
  Sex: Male

DRUGS (3)
  1. ANESTHETICS, LOCAL(ANESTHETICS, LOCAL) [Suspect]
     Dosage: INJECTION
     Dates: start: 20100101, end: 20100101
  2. XIAFLEX [Suspect]
     Indication: DUPUYTREN'S CONTRACTURE
     Dosage: 0.58 MG, 1 IN 1 D, INTRALESIONAL ; 1 IN 1 D, INTRALESIONAL
     Route: 026
     Dates: start: 20101101, end: 20101101
  3. XIAFLEX [Suspect]
     Indication: DUPUYTREN'S CONTRACTURE
     Dosage: 0.58 MG, 1 IN 1 D, INTRALESIONAL ; 1 IN 1 D, INTRALESIONAL
     Route: 026
     Dates: start: 20101027, end: 20101027

REACTIONS (8)
  - SWELLING [None]
  - DRUG INEFFECTIVE [None]
  - ERYTHEMA [None]
  - PAIN [None]
  - ECCHYMOSIS [None]
  - PRURITUS [None]
  - INSOMNIA [None]
  - LACERATION [None]
